FAERS Safety Report 4713856-X (Version None)
Quarter: 2005Q3

REPORT INFORMATION
  Report Type: 
  Country: None (occurrence: None)
  Receive Date: 20050713
  Receipt Date: 20050623
  Transmission Date: 20060218
  Serious: Yes (Hospitalization, Other)
  Sender: FDA-Public Use
  Company Number: US_0411107583

PATIENT
  Age: 51 Year
  Sex: Female
  Weight: 85 kg

DRUGS (11)
  1. ZYPREXA [Suspect]
     Indication: SUICIDAL IDEATION
     Dosage: 7.5 MG AT BEDTIME
     Dates: start: 20010110, end: 20020924
  2. SEROQUEL [Concomitant]
  3. FUROSEMIDE [Concomitant]
  4. CELEXA [Concomitant]
  5. CELEBREX [Concomitant]
  6. SONATA [Concomitant]
  7. HYDROXYZINE [Concomitant]
  8. SYNTHROID [Concomitant]
  9. PROTONIX [Concomitant]
  10. XANAX [Concomitant]
  11. KLONOPIN [Concomitant]

REACTIONS (7)
  - BLOOD CHOLESTEROL INCREASED [None]
  - BLOOD GLUCOSE INCREASED [None]
  - BLOOD TRIGLYCERIDES INCREASED [None]
  - CHOLELITHIASIS [None]
  - DIABETES MELLITUS [None]
  - LOW DENSITY LIPOPROTEIN INCREASED [None]
  - PANCREATITIS [None]
